FAERS Safety Report 8243254-6 (Version None)
Quarter: 2012Q1

REPORT INFORMATION
  Report Type: 
  Country: None (occurrence: None)
  Receive Date: 20120329
  Receipt Date: 20120326
  Transmission Date: 20120608
  Serious: Yes (Other)
  Sender: FDA-Public Use
  Company Number: US-JNJFOC-20120313026

PATIENT
  Age: 78 Year
  Sex: Female
  Weight: 50.35 kg

DRUGS (3)
  1. BENADRYL [Suspect]
     Indication: MULTIPLE ALLERGIES
     Route: 048
     Dates: end: 20120316
  2. UNSPECIFIED HERBAL SUPPLEMENTS [Concomitant]
     Indication: PRODUCT USED FOR UNKNOWN INDICATION
     Route: 065
  3. CAPOTEN [Concomitant]
     Indication: HYPERTENSION
     Route: 065

REACTIONS (1)
  - BLOOD PRESSURE INCREASED [None]
